FAERS Safety Report 11654423 (Version 3)
Quarter: 2015Q4

REPORT INFORMATION
  Report Type: Report from Study
  Country: CA (occurrence: CA)
  Receive Date: 20151023
  Receipt Date: 20151222
  Transmission Date: 20160304
  Serious: Yes (Other)
  Sender: FDA-Public Use
  Company Number: CA-ROCHE-1649941

PATIENT
  Age: 61 Year
  Sex: Female

DRUGS (13)
  1. PEGASYS [Suspect]
     Active Substance: PEGINTERFERON ALFA-2A
     Route: 058
     Dates: start: 20120626
  2. RIBAVIRIN. [Suspect]
     Active Substance: RIBAVIRIN
     Route: 048
     Dates: start: 20120525
  3. RIBAVIRIN. [Suspect]
     Active Substance: RIBAVIRIN
     Dosage: 200MG IN MORNING, 400MG BEFORE BED
     Route: 048
     Dates: start: 20120704
  4. BOCEPREVIR [Suspect]
     Active Substance: BOCEPREVIR
     Indication: HEPATITIS C
     Route: 048
     Dates: start: 20120622
  5. RIBAVIRIN. [Suspect]
     Active Substance: RIBAVIRIN
     Indication: HEPATITIS C
     Dosage: IN THE MORNING
     Route: 048
     Dates: start: 20150501
  6. PEGASYS [Suspect]
     Active Substance: PEGINTERFERON ALFA-2A
     Indication: HEPATITIS C
     Route: 058
     Dates: start: 20150501
  7. RIBAVIRIN. [Suspect]
     Active Substance: RIBAVIRIN
     Dosage: IN THE MORNING
     Route: 048
     Dates: start: 20150520
  8. PEGASYS [Suspect]
     Active Substance: PEGINTERFERON ALFA-2A
     Route: 058
     Dates: start: 20120525
  9. PEGASYS [Suspect]
     Active Substance: PEGINTERFERON ALFA-2A
     Route: 058
     Dates: start: 20120612
  10. SOFOSBUVIR [Suspect]
     Active Substance: SOFOSBUVIR
     Indication: HEPATITIS C
     Route: 048
     Dates: start: 20150501
  11. RIBAVIRIN. [Suspect]
     Active Substance: RIBAVIRIN
     Dosage: BEFORE BED
     Route: 048
     Dates: start: 20150501
  12. RIBAVIRIN. [Suspect]
     Active Substance: RIBAVIRIN
     Route: 048
     Dates: start: 20120612
  13. RIBAVIRIN. [Suspect]
     Active Substance: RIBAVIRIN
     Dosage: BEFORE BED
     Route: 048
     Dates: start: 20150520

REACTIONS (22)
  - White blood cell count decreased [Unknown]
  - Neutrophil count decreased [Unknown]
  - Gastrooesophageal reflux disease [Unknown]
  - Renal colic [Unknown]
  - Red blood cell count decreased [Unknown]
  - Platelet count decreased [Unknown]
  - Dizziness [Unknown]
  - Pollakiuria [Unknown]
  - Blood thyroid stimulating hormone decreased [Unknown]
  - White blood cell count decreased [Unknown]
  - Haemoglobin decreased [Unknown]
  - Fatigue [Unknown]
  - Haematocrit decreased [Unknown]
  - Alanine aminotransferase increased [Unknown]
  - Haemoglobin decreased [Unknown]
  - Bone pain [Unknown]
  - Platelet count decreased [Unknown]
  - Neutrophil count decreased [Unknown]
  - Urinary tract infection [Unknown]
  - Dysuria [Unknown]
  - Viral load increased [Unknown]
  - Red blood cell count decreased [Unknown]

NARRATIVE: CASE EVENT DATE: 20120605
